FAERS Safety Report 9684467 (Version 2)
Quarter: 2014Q3

REPORT INFORMATION
  Report Type: Report from Study
  Country: US (occurrence: US)
  Receive Date: 20131112
  Receipt Date: 20140702
  Transmission Date: 20150326
  Serious: Yes (Other)
  Sender: FDA-Public Use
  Company Number: US-009507513-1311USA003558

PATIENT
  Sex: Female

DRUGS (2)
  1. PEGASYS [Suspect]
     Active Substance: PEGINTERFERON ALFA-2A
     Dosage: UNK
     Dates: end: 201303
  2. REBETOL [Suspect]
     Active Substance: RIBAVIRIN
     Dosage: 3 PILLS DAILY
     Dates: end: 201303

REACTIONS (2)
  - Abortion spontaneous [Unknown]
  - Exposure via father [Recovered/Resolved]

NARRATIVE: CASE EVENT DATE: 201310
